FAERS Safety Report 17452750 (Version 2)
Quarter: 2020Q1

REPORT INFORMATION
  Report Type: Spontaneous
  Country: US (occurrence: US)
  Receive Date: 20200224
  Receipt Date: 20200324
  Transmission Date: 20200409
  Serious: No
  Sender: FDA-Public Use
  Company Number: US-ASTRAZENECA-2020SE24141

PATIENT
  Age: 1 Year
  Sex: Female
  Weight: 9.1 kg

DRUGS (4)
  1. SYNAGIS [Suspect]
     Active Substance: PALIVIZUMAB
     Indication: RESPIRATORY SYNCYTIAL VIRUS TEST
     Dosage: 15 MG/KG, EVERY 28-30 DAYS
     Route: 030
  2. POLY-VI-SOL/IRON [Concomitant]
  3. TYLENOL INFANTS PAIN+FEVE [Concomitant]
  4. SYNAGIS [Suspect]
     Active Substance: PALIVIZUMAB
     Indication: RESPIRATORY SYNCYTIAL VIRUS TEST
     Route: 030

REACTIONS (1)
  - Influenza [Unknown]
